FAERS Safety Report 17413119 (Version 1)
Quarter: 2020Q1

REPORT INFORMATION
  Report Type: Spontaneous
  Country: US (occurrence: US)
  Receive Date: 20200129
  Receipt Date: 20200129
  Transmission Date: 20200409
  Serious: Yes (Other)
  Sender: FDA-Public Use
  Company Number: None

PATIENT
  Age: 71 Year
  Sex: Female

DRUGS (1)
  1. HUMIRA [Suspect]
     Active Substance: ADALIMUMAB
     Indication: PSORIASIS
     Dosage: ?          OTHER DOSE:40/0.4 MG;ML;?
     Dates: start: 20190905, end: 20200129

REACTIONS (6)
  - Psoriasis [None]
  - Ear haemorrhage [None]
  - Skin fissures [None]
  - Depression [None]
  - Suicidal ideation [None]
  - Joint swelling [None]
